FAERS Safety Report 24864560 (Version 1)
Quarter: 2025Q1

REPORT INFORMATION
  Report Type: Spontaneous
  Country: CZ (occurrence: CZ)
  Receive Date: 20250120
  Receipt Date: 20250120
  Transmission Date: 20250409
  Serious: Yes (Other)
  Sender: JOHNSON AND JOHNSON
  Company Number: CZ-JNJFOC-20250133527

PATIENT
  Age: 67 Year
  Sex: Male

DRUGS (11)
  1. STELARA [Suspect]
     Active Substance: USTEKINUMAB
     Indication: Psoriasis
     Route: 058
     Dates: start: 20170216
  2. ALLOPURINOL [Concomitant]
     Active Substance: ALLOPURINOL
  3. HYDROCHLOROTHIAZIDE\QUINAPRIL HYDROCHLORIDE [Concomitant]
     Active Substance: HYDROCHLOROTHIAZIDE\QUINAPRIL HYDROCHLORIDE
  4. ACCUPRO [Concomitant]
     Active Substance: QUINAPRIL HYDROCHLORIDE
  5. ATORVASTATIN CALCIUM [Concomitant]
     Active Substance: ATORVASTATIN CALCIUM
  6. EUPHYLLIN [AMINOPHYLLINE] [Concomitant]
  7. AMLODIPINE [Concomitant]
     Active Substance: AMLODIPINE BESYLATE
  8. TRELEGY ELLIPTA [Concomitant]
     Active Substance: FLUTICASONE FUROATE\UMECLIDINIUM BROMIDE\VILANTEROL TRIFENATATE
  9. TRELEGY ELLIPTA [Concomitant]
     Active Substance: FLUTICASONE FUROATE\UMECLIDINIUM BROMIDE\VILANTEROL TRIFENATATE
  10. POTASSIUM CHLORIDE [Concomitant]
     Active Substance: POTASSIUM CHLORIDE
  11. ERDOSTEINE [Concomitant]
     Active Substance: ERDOSTEINE

REACTIONS (3)
  - Pneumonia [Unknown]
  - Chronic obstructive pulmonary disease [Unknown]
  - Fractional exhaled nitric oxide increased [Unknown]
